FAERS Safety Report 15736583 (Version 2)
Quarter: 2019Q1

REPORT INFORMATION
  Report Type: Spontaneous
  Country: DE (occurrence: DE)
  Receive Date: 20181218
  Receipt Date: 20190109
  Transmission Date: 20190417
  Serious: Yes (Death)
  Sender: FDA-Public Use
  Company Number: DE-BAUSCH-BL-2018-035220

PATIENT
  Sex: Male

DRUGS (1)
  1. AMMONUL [Suspect]
     Active Substance: SODIUM BENZOATE\SODIUM PHENYLACETATE
     Indication: UREA CYCLE DISORDER
     Route: 065
     Dates: start: 20181105, end: 20181110

REACTIONS (1)
  - Urea cycle disorder [Fatal]

NARRATIVE: CASE EVENT DATE: 201811
